FAERS Safety Report 18116833 (Version 2)
Quarter: 2022Q2

REPORT INFORMATION
  Report Type: Spontaneous
  Country: CA (occurrence: CA)
  Receive Date: 20200805
  Receipt Date: 20220511
  Transmission Date: 20220721
  Serious: Yes (Life-Threatening)
  Sender: FDA-Public Use
  Company Number: CA-ANIPHARMA-2020-CA-001466

PATIENT
  Age: 46 Year
  Sex: Male
  Weight: 117.94 kg

DRUGS (2)
  1. CANDESARTAN CILEXETIL AND HYDROCHLOROTHIAZIDE [Suspect]
     Active Substance: CANDESARTAN CILEXETIL\HYDROCHLOROTHIAZIDE
     Indication: Product used for unknown indication
     Route: 048
  2. ACETAMINOPHEN\PSEUDOEPHEDRINE [Suspect]
     Active Substance: ACETAMINOPHEN\PSEUDOEPHEDRINE
     Dosage: 4 DF UNK
     Route: 048

REACTIONS (3)
  - Anaphylactic shock [Unknown]
  - Angioedema [Unknown]
  - Mechanical ventilation [Unknown]
